FAERS Safety Report 4720632-0 (Version None)
Quarter: 2005Q3

REPORT INFORMATION
  Report Type: 
  Country: None (occurrence: None)
  Receive Date: 20050719
  Receipt Date: 20050430
  Transmission Date: 20060218
  Serious: Yes (Other)
  Sender: FDA-Public Use
  Company Number: 2005057036

PATIENT
  Sex: Female
  Weight: 83.9154 kg

DRUGS (4)
  1. CELEBREX [Suspect]
     Indication: INFLAMMATION
     Dosage: 200 MG (200 MG, 1 IN 1 D), ORAL
     Route: 048
     Dates: end: 20050328
  2. GABAPENTIN [Concomitant]
  3. PRAMIPEXOLE [Concomitant]
  4. VICODIN [Concomitant]

REACTIONS (12)
  - BODY TEMPERATURE INCREASED [None]
  - CHILLS [None]
  - DIZZINESS [None]
  - DRUG INEFFECTIVE [None]
  - ERYTHEMA [None]
  - FEELING ABNORMAL [None]
  - FEELING HOT [None]
  - HEADACHE [None]
  - NAUSEA [None]
  - PRURITUS [None]
  - TREMOR [None]
  - VOMITING [None]
